FAERS Safety Report 13604961 (Version 1)
Quarter: 2017Q2

REPORT INFORMATION
  Report Type: Spontaneous
  Country: US (occurrence: US)
  Receive Date: 20170602
  Receipt Date: 20170602
  Transmission Date: 20170830
  Serious: No
  Sender: FDA-Public Use
  Company Number: US-NOVEN PHARMACEUTICALS, INC.-US2016002186

PATIENT

DRUGS (2)
  1. KAPVAY [Concomitant]
     Active Substance: CLONIDINE HYDROCHLORIDE
     Dosage: 0.2 MG, UNK
  2. DAYTRANA [Suspect]
     Active Substance: METHYLPHENIDATE
     Indication: ATTENTION DEFICIT/HYPERACTIVITY DISORDER
     Dosage: 40 MG (APPLYING TWO PATCHES OF 30MG +10MG TOGETHER), UNKNOWN
     Route: 062
     Dates: start: 2015, end: 201606

REACTIONS (8)
  - Logorrhoea [Recovering/Resolving]
  - Apathy [Recovering/Resolving]
  - Abnormal behaviour [Recovering/Resolving]
  - Prescribed overdose [Recovered/Resolved]
  - Wrong technique in product usage process [Recovered/Resolved]
  - Disturbance in attention [Recovering/Resolving]
  - Off label use [Unknown]
  - Drug dose omission [Recovered/Resolved]

NARRATIVE: CASE EVENT DATE: 2015
